FAERS Safety Report 8131356-4 (Version None)
Quarter: 2012Q1

REPORT INFORMATION
  Report Type: 
  Country: None (occurrence: None)
  Receive Date: 20120213
  Receipt Date: 20111114
  Transmission Date: 20120608
  Serious: No
  Sender: FDA-Public Use
  Company Number: US-TYCO HEALTHCARE/MALLINCKRODT-T201101318

PATIENT
  Sex: Female

DRUGS (2)
  1. PENNSAID [Suspect]
  2. EYE DROPS [Suspect]

REACTIONS (2)
  - EYE IRRITATION [None]
  - WRONG DRUG ADMINISTERED [None]
